FAERS Safety Report 10411130 (Version 2)
Quarter: 2015Q2

REPORT INFORMATION
  Report Type: Spontaneous
  Country: US (occurrence: None)
  Receive Date: 20140514
  Receipt Date: 20150515
  Transmission Date: 20150821
  Serious: Yes (Hospitalization)
  Sender: FDA-Public Use
  Company Number: 112520

PATIENT
  Age: 28 Year
  Sex: Male
  Weight: 93 kg

DRUGS (2)
  1. CIMZIA [Suspect]
     Active Substance: CERTOLIZUMAB PEGOL
     Indication: CROHN^S DISEASE
     Route: 058
     Dates: start: 20121119, end: 2012
  2. EMURAN (AZATHIOPRINE) [Concomitant]

REACTIONS (3)
  - Hospitalisation [None]
  - Abdominal discomfort [None]
  - Crohn^s disease [None]

NARRATIVE: CASE EVENT DATE: 20140108
